FAERS Safety Report 24787995 (Version 1)
Quarter: 2024Q4

REPORT INFORMATION
  Report Type: Report from Study
  Country: DE (occurrence: DE)
  Receive Date: 20241230
  Receipt Date: 20241230
  Transmission Date: 20250114
  Serious: Yes (Death, Hospitalization, Other)
  Sender: NORDIC PHARMA
  Company Number: DE-BRISTOL-MYERS SQUIBB COMPANY-2024-054813

PATIENT
  Age: 85 Year
  Sex: Male

DRUGS (2)
  1. METHOTREXATE [Suspect]
     Active Substance: METHOTREXATE
     Indication: Product used for unknown indication
     Route: 065
     Dates: end: 20240326
  2. ORENCIA [Concomitant]
     Active Substance: ABATACEPT
     Indication: Rheumatoid arthritis
     Route: 058
     Dates: end: 20240326

REACTIONS (3)
  - Aortic aneurysm [Not Recovered/Not Resolved]
  - Pneumonia [Fatal]
  - Septic shock [Fatal]

NARRATIVE: CASE EVENT DATE: 20240111
